FAERS Safety Report 5803503-8 (Version None)
Quarter: 2008Q3

REPORT INFORMATION
  Report Type: 
  Country: None (occurrence: None)
  Receive Date: 20080702
  Receipt Date: 20080625
  Transmission Date: 20090109
  Serious: Yes (Hospitalization)
  Sender: FDA-Public Use
  Company Number: 2008SP011685

PATIENT
  Age: 30 Year
  Sex: Male
  Weight: 67 kg

DRUGS (3)
  1. PEG-INTRON [Suspect]
     Indication: HEPATITIS B
     Dosage: 100 MCG; QW; SC
     Route: 058
     Dates: start: 20071029, end: 20080408
  2. DIAMMONIUM GLYCYRRHIZINATE (GLYCYRRHIZIC ACID, AMMONIUM SALT) [Suspect]
     Indication: DRUG USE FOR UNKNOWN INDICATION
     Dosage: 150 MG; TID; PO
     Route: 048
     Dates: start: 20080513, end: 20080613
  3. ANETHOL TRITHIONE (ANETHOLE TRITHIONE) [Suspect]
     Indication: DRUG USE FOR UNKNOWN INDICATION
     Dosage: 1 DF; TID; PO
     Route: 048
     Dates: start: 20080513, end: 20080613

REACTIONS (6)
  - ACTIVATED PARTIAL THROMBOPLASTIN TIME PROLONGED [None]
  - CHOLECYSTITIS [None]
  - HEPATITIS B [None]
  - NO THERAPEUTIC RESPONSE [None]
  - PROTHROMBIN TIME SHORTENED [None]
  - SPLENOMEGALY [None]
